FAERS Safety Report 14110863 (Version 1)
Quarter: 2017Q4

REPORT INFORMATION
  Report Type: Spontaneous
  Country: US (occurrence: US)
  Receive Date: 20171020
  Receipt Date: 20171020
  Transmission Date: 20180321
  Serious: Yes (Disabling)
  Sender: FDA-Public Use
  Company Number: None

PATIENT
  Sex: Male
  Weight: 85.5 kg

DRUGS (5)
  1. VITAMIN B12 [Concomitant]
     Active Substance: CYANOCOBALAMIN
  2. VITAMIN D [Concomitant]
     Active Substance: CHOLECALCIFEROL
  3. LYRICA [Suspect]
     Active Substance: PREGABALIN
     Indication: FIBROMYALGIA
     Dosage: ?          QUANTITY:180 CAPSULE(S);?
     Route: 048
     Dates: start: 20170310, end: 20170721
  4. VIAGRA [Concomitant]
     Active Substance: SILDENAFIL CITRATE
  5. CLARITIN [Concomitant]
     Active Substance: LORATADINE

REACTIONS (8)
  - Fatigue [None]
  - Joint swelling [None]
  - Eyelid oedema [None]
  - Drug hypersensitivity [None]
  - Suicidal ideation [None]
  - Aphasia [None]
  - Arthralgia [None]
  - Cognitive disorder [None]

NARRATIVE: CASE EVENT DATE: 20170721
